FAERS Safety Report 9466604 (Version 1)
Quarter: 2013Q3

REPORT INFORMATION
  Report Type: Report from Study
  Country: GB (occurrence: GB)
  Receive Date: 20130820
  Receipt Date: 20130820
  Transmission Date: 20140515
  Serious: Yes (Hospitalization)
  Sender: FDA-Public Use
  Company Number: PHHO2013GB010695

PATIENT
  Age: 66 Year
  Sex: Male
  Weight: 107.9 kg

DRUGS (11)
  1. BLINDED ENALAPRIL [Suspect]
     Indication: CARDIAC FAILURE CHRONIC
     Dosage: CODE NOT BROKEN
     Route: 048
     Dates: start: 20110120, end: 20130802
  2. BLINDED LCZ696 [Suspect]
     Indication: CARDIAC FAILURE CHRONIC
     Dosage: CODE NOT BROKEN
     Route: 048
     Dates: start: 20110120, end: 20130802
  3. BLINDED NO TREATMENT RECEIVED [Suspect]
     Indication: CARDIAC FAILURE CHRONIC
     Dosage: CODE NOT BROKEN
     Route: 048
     Dates: start: 20110120, end: 20130802
  4. BLINDED ENALAPRIL [Suspect]
     Dosage: CODE NOT BROKEN
     Route: 048
     Dates: start: 20130808
  5. BLINDED LCZ696 [Suspect]
     Dosage: CODE NOT BROKEN
     Route: 048
     Dates: start: 20130808
  6. BLINDED NO TREATMENT RECEIVED [Suspect]
     Dosage: CODE NOT BROKEN
     Route: 048
     Dates: start: 20130808
  7. BISOPROLOL [Suspect]
  8. FUROSEMIDE [Suspect]
  9. WARFARIN [Concomitant]
     Indication: ATRIAL FIBRILLATION
     Dosage: VARIABLE
     Dates: start: 200912, end: 20130802
  10. DIGOXIN [Concomitant]
     Indication: ATRIAL FIBRILLATION
     Dosage: 62.5 UG, UNK
     Dates: start: 200912, end: 20130802
  11. SIMVASTATIN [Concomitant]
     Indication: BLOOD CHOLESTEROL INCREASED
     Dosage: 40 MG, UNK
     Dates: start: 20110728, end: 20130802

REACTIONS (3)
  - Renal failure acute [Recovering/Resolving]
  - Dehydration [Recovering/Resolving]
  - Diarrhoea [Recovering/Resolving]
